FAERS Safety Report 9626770 (Version 4)
Quarter: 2014Q1

REPORT INFORMATION
  Report Type: Spontaneous
  Country: US (occurrence: US)
  Receive Date: 20131016
  Receipt Date: 20140313
  Transmission Date: 20141002
  Serious: Yes (Other)
  Sender: FDA-Public Use
  Company Number: US-GLAXOSMITHKLINE-A1045618A

PATIENT
  Age: 75 Year
  Sex: Male

DRUGS (1)
  1. VOTRIENT [Suspect]
     Indication: NEOPLASM MALIGNANT
     Dosage: 200MG UNKNOWN
     Route: 065
     Dates: start: 20130819

REACTIONS (4)
  - Blindness [Unknown]
  - Visual impairment [Unknown]
  - Vision blurred [Unknown]
  - Therapeutic response decreased [Unknown]
